FAERS Safety Report 4853747-7 (Version None)
Quarter: 2005Q4

REPORT INFORMATION
  Report Type: 
  Country: None (occurrence: None)
  Receive Date: 20051212
  Receipt Date: 20051121
  Transmission Date: 20060501
  Serious: Yes (Hospitalization)
  Sender: FDA-Public Use
  Company Number: US200511002185

PATIENT
  Sex: Female

DRUGS (1)
  1. HUMULIN L [Suspect]
     Indication: DIABETES MELLITUS

REACTIONS (2)
  - DYSPNOEA [None]
  - PNEUMONIA [None]
